FAERS Safety Report 6933220-2 (Version None)
Quarter: 2010Q3

REPORT INFORMATION
  Report Type: 
  Country: None (occurrence: None)
  Receive Date: 20100820
  Receipt Date: 20100816
  Transmission Date: 20110219
  Serious: Yes (Other)
  Sender: FDA-Public Use
  Company Number: US-ASTRAZENECA-2007UW09604

PATIENT
  Age: 11343 Day
  Sex: Male
  Weight: 154.2 kg

DRUGS (34)
  1. SEROQUEL [Suspect]
     Indication: DEPRESSION
     Dosage: 100-600 MG
     Route: 048
     Dates: start: 19980205
  2. SEROQUEL [Suspect]
     Indication: MENTAL DISORDER
     Dosage: 100-600 MG
     Route: 048
     Dates: start: 19980205
  3. SEROQUEL [Suspect]
     Indication: SCHIZOPHRENIA
     Dosage: 100-600 MG
     Route: 048
     Dates: start: 19980205
  4. SEROQUEL [Suspect]
     Indication: BIPOLAR DISORDER
     Dosage: 100-600 MG
     Route: 048
     Dates: start: 19980205
  5. SEROQUEL [Suspect]
     Route: 048
     Dates: start: 19980411, end: 20031010
  6. SEROQUEL [Suspect]
     Route: 048
     Dates: start: 19980411, end: 20031010
  7. SEROQUEL [Suspect]
     Route: 048
     Dates: start: 19980411, end: 20031010
  8. SEROQUEL [Suspect]
     Route: 048
     Dates: start: 19980411, end: 20031010
  9. SEROQUEL [Suspect]
     Route: 048
     Dates: start: 19980205, end: 20031010
  10. SEROQUEL [Suspect]
     Route: 048
     Dates: start: 19980205, end: 20031010
  11. SEROQUEL [Suspect]
     Route: 048
     Dates: start: 19980205, end: 20031010
  12. SEROQUEL [Suspect]
     Route: 048
     Dates: start: 19980205, end: 20031010
  13. TRAZODONE HCL [Concomitant]
     Dosage: 100-600 MG
     Dates: start: 19961017, end: 20070101
  14. BENZTROPINE MESYLATE [Concomitant]
     Dates: start: 19961212
  15. NEURONTIN [Concomitant]
     Indication: CONVULSION
     Dosage: 300-2400 MG
     Dates: start: 19961212, end: 20030107
  16. NEURONTIN [Concomitant]
     Indication: PAIN
     Dosage: 300-2400 MG
     Dates: start: 19961212, end: 20030107
  17. NEURONTIN [Concomitant]
     Indication: RESTLESS LEGS SYNDROME
     Dosage: 300-2400 MG
     Dates: start: 19961212, end: 20030107
  18. NEURONTIN [Concomitant]
     Indication: NERVOUS SYSTEM DISORDER
     Dosage: 300-2400 MG
     Dates: start: 19961212, end: 20030107
  19. HALDOL [Concomitant]
     Dosage: 2-20 MG, 10 MG
     Dates: start: 19970922, end: 20030107
  20. EFFEXOR XR [Concomitant]
     Indication: ANXIETY DISORDER
     Dosage: 75-450 MG
     Dates: start: 19970922, end: 20050101
  21. AMBIEN [Concomitant]
     Dosage: 10 MG 1-2 TWO -THREE TIMES A WEEK
     Dates: start: 19980701
  22. RISPERDAL [Concomitant]
     Indication: SCHIZOPHRENIA
     Dates: start: 19990801, end: 20040820
  23. RISPERDAL [Concomitant]
     Indication: BIPOLAR DISORDER
     Dates: start: 19990801, end: 20040820
  24. RISPERDAL [Concomitant]
     Indication: DEPRESSION
     Dates: start: 19990801, end: 20040820
  25. ZYPREXA [Concomitant]
     Indication: SCHIZOPHRENIA
     Dosage: 5 MG - 10 MG
     Dates: start: 19970501, end: 19980101
  26. ZYPREXA [Concomitant]
     Indication: BIPOLAR DISORDER
     Dosage: 5 MG - 10 MG
     Dates: start: 19970501, end: 19980101
  27. ZYPREXA [Concomitant]
     Indication: DEPRESSION
     Dosage: 5 MG - 10 MG
     Dates: start: 19970501, end: 19980101
  28. ABILIFY [Concomitant]
     Dates: start: 20040101
  29. GEODON [Concomitant]
     Dates: start: 20030101
  30. LIPITOR [Concomitant]
  31. ZOCOR [Concomitant]
  32. CYMBALTA [Concomitant]
     Dates: start: 20050101, end: 20070101
  33. PAXIL [Concomitant]
     Dates: start: 20030101
  34. ZOLOFT [Concomitant]
     Dates: start: 20010101, end: 20040101

REACTIONS (16)
  - ADVERSE DRUG REACTION [None]
  - BLOOD CHOLESTEROL INCREASED [None]
  - BLOOD TRIGLYCERIDES INCREASED [None]
  - DIABETES MELLITUS [None]
  - DIABETIC NEUROPATHY [None]
  - DIABETIC ULCER [None]
  - HYPERGLYCAEMIA [None]
  - HYPERLIPIDAEMIA [None]
  - JOINT SPRAIN [None]
  - LIMB DISCOMFORT [None]
  - NEUROPATHY PERIPHERAL [None]
  - OBESITY [None]
  - SLEEP APNOEA SYNDROME [None]
  - SUICIDAL IDEATION [None]
  - TYPE 1 DIABETES MELLITUS [None]
  - TYPE 2 DIABETES MELLITUS [None]
